FAERS Safety Report 5909359-7 (Version None)
Quarter: 2008Q4

REPORT INFORMATION
  Report Type: 
  Country: None (occurrence: None)
  Receive Date: 20081006
  Receipt Date: 20081001
  Transmission Date: 20090506
  Serious: Yes (Hospitalization)
  Sender: FDA-Public Use
  Company Number: TW-ROXANE LABORATORIES, INC.-2008-RO-00100RO

PATIENT
  Sex: Female
  Weight: 3 kg

DRUGS (8)
  1. DIGOXIN [Suspect]
     Indication: ASCITES
     Route: 015
  2. DIGOXIN [Suspect]
     Indication: HYPERTROPHIC CARDIOMYOPATHY
  3. IRON [Suspect]
     Indication: ASCITES
     Route: 064
  4. IRON [Suspect]
     Indication: HYPERTROPHIC CARDIOMYOPATHY
  5. FOLIC ACID [Suspect]
     Indication: ASCITES
     Route: 064
  6. FOLIC ACID [Suspect]
     Indication: HYPERTROPHIC CARDIOMYOPATHY
  7. VITAMIN B COMPLEX CAP [Suspect]
     Indication: ASCITES
     Route: 064
  8. VITAMIN B COMPLEX CAP [Suspect]
     Indication: HYPERTROPHIC CARDIOMYOPATHY

REACTIONS (2)
  - ATRIAL SEPTAL DEFECT [None]
  - PATENT DUCTUS ARTERIOSUS [None]
